FAERS Safety Report 10461958 (Version 1)
Quarter: 2014Q3

REPORT INFORMATION
  Report Type: Spontaneous
  Country: US (occurrence: None)
  Receive Date: 20140916
  Receipt Date: 20140916
  Transmission Date: 20150326
  Serious: Yes (Other)
  Sender: FDA-Public Use
  Company Number: 201409001

PATIENT
  Age: 57 Year
  Sex: Male

DRUGS (2)
  1. TESTIM [Suspect]
     Active Substance: TESTOSTERONE
     Indication: BLOOD TESTOSTERONE DECREASED
     Route: 062
     Dates: start: 200609, end: 201112
  2. ANDROGEL [Suspect]
     Active Substance: TESTOSTERONE
     Indication: BLOOD TESTOSTERONE DECREASED
     Route: 061
     Dates: start: 200609, end: 201112

REACTIONS (7)
  - Cardiac failure congestive [None]
  - Unevaluable event [None]
  - Cardiac disorder [None]
  - Pain [None]
  - Myocardial infarction [None]
  - Economic problem [None]
  - Multiple injuries [None]

NARRATIVE: CASE EVENT DATE: 20100530
